FAERS Safety Report 25642064 (Version 1)
Quarter: 2025Q3

REPORT INFORMATION
  Report Type: Report from Study
  Country: CO (occurrence: CO)
  Receive Date: 20250805
  Receipt Date: 20250805
  Transmission Date: 20251021
  Serious: No
  Sender: TAKEDA
  Company Number: CO-TAKEDA-2025TUS068438

PATIENT
  Age: 7 Year
  Sex: Female
  Weight: 16 kg

DRUGS (6)
  1. HUMAN IMMUNOGLOBULIN G\HYALURONIDASE RECOMBINANT HUMAN [Suspect]
     Active Substance: HUMAN IMMUNOGLOBULIN G\HYALURONIDASE (HUMAN RECOMBINANT)
     Indication: Primary immunodeficiency syndrome
     Dosage: 6.4 GRAM, MONTHLY
  2. DUPILUMAB [Concomitant]
     Active Substance: DUPILUMAB
     Dosage: 150 MG/1 ML, Q2WEEKS
  3. FEXOFENADINE [Concomitant]
     Active Substance: FEXOFENADINE HYDROCHLORIDE
     Dosage: UNK UNK, Q12H
  4. MONTELUKAST [Concomitant]
     Active Substance: MONTELUKAST
     Dosage: 5 MILLIGRAM, QD
  5. AZITHROMYCIN [Concomitant]
     Active Substance: AZITHROMYCIN
     Dosage: 160 MILLIGRAM, Q3WEEKS
  6. PIDOTIMOD [Concomitant]
     Active Substance: PIDOTIMOD

REACTIONS (1)
  - Rash erythematous [Unknown]

NARRATIVE: CASE EVENT DATE: 20250701
